FAERS Safety Report 5102422-2 (Version None)
Quarter: 2006Q3

REPORT INFORMATION
  Report Type: 
  Country: None (occurrence: None)
  Receive Date: 20060907
  Receipt Date: 20060828
  Transmission Date: 20061208
  Serious: Yes (Other)
  Sender: FDA-Public Use
  Company Number: 2006104807

PATIENT
  Age: 9 Year
  Sex: Male

DRUGS (6)
  1. SOLU-MEDROL [Suspect]
     Indication: DRUG USE FOR UNKNOWN INDICATION
     Dosage: 80 MG, INTRAVENOUS
     Route: 042
     Dates: start: 20060812
  2. DIPRIVAN [Concomitant]
  3. LASIX [Concomitant]
  4. FAMOTIDINE [Concomitant]
  5. CEFOTIAM HYDROCHLORIDE [Concomitant]
  6. DOPAMINE HYDROCHLORIDE [Concomitant]

REACTIONS (1)
  - NEPHROLITHIASIS [None]
